FAERS Safety Report 19577371 (Version 1)
Quarter: 2021Q3

REPORT INFORMATION
  Report Type: Spontaneous
  Country: US (occurrence: US)
  Receive Date: 20210719
  Receipt Date: 20210719
  Transmission Date: 20211014
  Serious: No
  Sender: FDA-Public Use
  Company Number: US-RISING PHARMA HOLDINGS, INC.-2020RIS000247

PATIENT
  Sex: Female

DRUGS (1)
  1. CEVIMELINE HYDROCHLORIDE. [Suspect]
     Active Substance: CEVIMELINE HYDROCHLORIDE
     Indication: SJOGREN^S SYNDROME
     Dosage: UNK, TID
     Route: 048

REACTIONS (4)
  - Insomnia [Unknown]
  - Burning sensation [Unknown]
  - Off label use [Unknown]
  - Dry mouth [Unknown]
